FAERS Safety Report 19475605 (Version 1)
Quarter: 2021Q2

REPORT INFORMATION
  Report Type: Report from Study
  Country: US (occurrence: US)
  Receive Date: 20210630
  Receipt Date: 20210630
  Transmission Date: 20210717
  Serious: Yes (Life-Threatening, Hospitalization, Other)
  Sender: FDA-Public Use
  Company Number: US-SUN PHARMACEUTICAL INDUSTRIES LTD-2021R1-301754

PATIENT
  Age: 19 Year
  Sex: Female

DRUGS (4)
  1. HIGH?DOSE METHOTREXATE [Interacting]
     Active Substance: METHOTREXATE
     Indication: ACUTE LYMPHOCYTIC LEUKAEMIA
     Dosage: 5000 MILLIGRAM/SQ. METER , UNK
     Route: 065
  2. HIGH?DOSE METHOTREXATE [Interacting]
     Active Substance: METHOTREXATE
     Dosage: 100?300 MG/M2 , UNK (EVERY 10 DAYS)
     Route: 042
  3. IMATINIB. [Suspect]
     Active Substance: IMATINIB MESYLATE
     Indication: ACUTE LYMPHOCYTIC LEUKAEMIA
     Dosage: 340 MILLIGRAM/SQ. METER, DAILY
     Route: 065
  4. HIGH?DOSE METHOTREXATE [Interacting]
     Active Substance: METHOTREXATE
     Dosage: 20 MILLIGRAM/SQ. METER, WEEKLY
     Route: 048

REACTIONS (6)
  - Acute kidney injury [Recovered/Resolved]
  - Mucosal inflammation [Recovered/Resolved]
  - Drug clearance decreased [Unknown]
  - Thrombocytopenia [Recovered/Resolved]
  - Drug interaction [Unknown]
  - Neutropenia [Recovered/Resolved]
